FAERS Safety Report 19673405 (Version 1)
Quarter: 2021Q3

REPORT INFORMATION
  Report Type: Spontaneous
  Country: US (occurrence: US)
  Receive Date: 20210807
  Receipt Date: 20210807
  Transmission Date: 20211014
  Serious: Yes (Disabling)
  Sender: FDA-Public Use
  Company Number: None

PATIENT
  Age: 31 Year
  Sex: Female
  Weight: 54.45 kg

DRUGS (1)
  1. KRATOM [Suspect]
     Active Substance: HERBALS\MITRAGYNINE

REACTIONS (5)
  - Delusion [None]
  - Poor personal hygiene [None]
  - Asocial behaviour [None]
  - Loss of personal independence in daily activities [None]
  - Anxiety [None]

NARRATIVE: CASE EVENT DATE: 20200315
